FAERS Safety Report 8922173 (Version 1)
Quarter: 2012Q4

REPORT INFORMATION
  Report Type: 
  Country: FR (occurrence: FR)
  Receive Date: 20121123
  Receipt Date: 20121123
  Transmission Date: 20130627
  Serious: Yes (Hospitalization)
  Sender: FDA-Public Use
  Company Number: FR-009507513-1211FRA008508

PATIENT
  Age: 59 Year
  Sex: Female

DRUGS (13)
  1. EZETROL [Suspect]
     Indication: HYPERCHOLESTEROLAEMIA
     Dosage: 10 mg, bid
     Route: 048
     Dates: end: 201209
  2. BELUSTINE [Suspect]
     Indication: OLIGODENDROGLIOMA
     Dosage: 160 mg, Once
     Route: 048
     Dates: start: 20120725, end: 20120725
  3. VINCRISTINE SULFATE [Suspect]
     Indication: OLIGODENDROGLIOMA
     Dosage: 2 mg, Cyclical
     Route: 042
     Dates: start: 20120802, end: 20120823
  4. NATULAN [Suspect]
     Dosage: UNK, Cyclical
  5. DEPAKINE CHRONO [Suspect]
     Indication: EPILEPSY
     Dosage: 2 DF, bid
     Route: 048
     Dates: end: 201209
  6. XANAX [Suspect]
     Dosage: 1 DF, bid
     Route: 048
  7. ENDOTELON [Suspect]
     Dosage: 1 DF, qd
     Route: 048
     Dates: end: 201209
  8. INEXIUM [Suspect]
     Dosage: 20 mg, qd
     Route: 048
     Dates: end: 201209
  9. MEDROL [Suspect]
     Dosage: 16 mg, bid
     Route: 048
     Dates: end: 201209
  10. ZANIDIP [Suspect]
     Dosage: 10 mg, qd
     Route: 048
     Dates: end: 201209
  11. MOXONIDINE [Suspect]
     Indication: HYPERTENSION
     Dosage: 0.25 mg, qd
     Route: 048
     Dates: end: 201209
  12. TEMESTA [Suspect]
     Dosage: 1 mg, qd
     Route: 048
     Dates: start: 201207, end: 201209
  13. DITROPAN [Suspect]
     Dosage: 2.5 mg, bid
     Route: 048
     Dates: start: 20120903, end: 20120907

REACTIONS (10)
  - Mixed liver injury [Not Recovered/Not Resolved]
  - Fall [None]
  - Hepatitis acute [None]
  - Urinary retention [None]
  - Balance disorder [None]
  - VIIth nerve paralysis [None]
  - Hemiparesis [None]
  - Altered state of consciousness [None]
  - Hyperammonaemia [None]
  - Hypercalcaemia [None]
